FAERS Safety Report 5245442-X (Version None)
Quarter: 2007Q1

REPORT INFORMATION
  Report Type: 
  Country: None (occurrence: None)
  Receive Date: 20070223
  Receipt Date: 20070213
  Transmission Date: 20070707
  Serious: Yes (Hospitalization)
  Sender: FDA-Public Use
  Company Number: US-BRISTOL-MYERS SQUIBB COMPANY-13689245

PATIENT
  Age: 56 Year
  Sex: Male

DRUGS (6)
  1. PRINIVIL [Suspect]
     Indication: HYPERTENSION
     Route: 048
  2. POTASSIUM CHLORIDE [Suspect]
     Indication: MINERAL SUPPLEMENTATION
     Dates: start: 19990101
  3. ALLOPURINOL SODIUM [Concomitant]
  4. CARVEDILOL [Concomitant]
  5. COLCHICINE [Concomitant]
  6. DIGOXIN [Concomitant]

REACTIONS (3)
  - FATIGUE [None]
  - HYPERHIDROSIS [None]
  - HYPERKALAEMIA [None]
